FAERS Safety Report 14587037 (Version 1)
Quarter: 2018Q1

REPORT INFORMATION
  Report Type: Spontaneous
  Country: US (occurrence: US)
  Receive Date: 20180301
  Receipt Date: 20180301
  Transmission Date: 20180509
  Serious: Yes (Other)
  Sender: FDA-Public Use
  Company Number: US-EMD SERONO-233615K05USA

PATIENT
  Sex: Female

DRUGS (2)
  1. REBIF [Suspect]
     Active Substance: INTERFERON BETA-1A
     Indication: MULTIPLE SCLEROSIS
     Route: 058
     Dates: start: 20050315, end: 20050714
  2. REBIF [Suspect]
     Active Substance: INTERFERON BETA-1A
     Route: 058
     Dates: start: 20060321, end: 20070501

REACTIONS (3)
  - Maternal exposure during pregnancy [Recovered/Resolved]
  - Pregnancy on contraceptive [Recovered/Resolved]
  - Live birth [Recovered/Resolved]

NARRATIVE: CASE EVENT DATE: 2005
